FAERS Safety Report 13342822 (Version 1)
Quarter: 2017Q1

REPORT INFORMATION
  Report Type: Spontaneous
  Country: CN (occurrence: CN)
  Receive Date: 20170316
  Receipt Date: 20170316
  Transmission Date: 20170428
  Serious: Yes (Hospitalization, Other)
  Sender: FDA-Public Use
  Company Number: CN-009507513-1703CHN003615

PATIENT
  Age: 82 Year
  Sex: Female

DRUGS (1)
  1. COZAAR [Suspect]
     Active Substance: LOSARTAN POTASSIUM
     Indication: ESSENTIAL HYPERTENSION
     Dosage: 100 MG, QD
     Route: 048
     Dates: start: 20170109, end: 2017

REACTIONS (4)
  - Pulse abnormal [Unknown]
  - Renal impairment [Recovering/Resolving]
  - Diabetes mellitus inadequate control [Recovered/Resolved]
  - Oliguria [Unknown]

NARRATIVE: CASE EVENT DATE: 201701
